FAERS Safety Report 7624155-0 (Version None)
Quarter: 2011Q3

REPORT INFORMATION
  Report Type: 
  Country: None (occurrence: None)
  Receive Date: 20110720
  Receipt Date: 20110712
  Transmission Date: 20111222
  Serious: Yes (Other)
  Sender: FDA-Public Use
  Company Number: US-JNJFOC-20110411893

PATIENT
  Age: 24 Year
  Sex: Male
  Weight: 80.74 kg

DRUGS (1)
  1. LISTERINE TOTAL CARE ANTICAVITY MOUTHWASH [Suspect]
     Indication: DENTAL DISORDER PROPHYLAXIS
     Route: 048
     Dates: start: 20110413, end: 20110415

REACTIONS (8)
  - TONGUE DISORDER [None]
  - LIP PAIN [None]
  - TONGUE HAEMORRHAGE [None]
  - ORAL MUCOSAL EXFOLIATION [None]
  - TOOTHACHE [None]
  - CHEMICAL INJURY [None]
  - SENSORY DISTURBANCE [None]
  - INFLAMMATION [None]
